FAERS Safety Report 15719669 (Version 1)
Quarter: 2018Q4

REPORT INFORMATION
  Report Type: Spontaneous
  Country: US (occurrence: US)
  Receive Date: 20181213
  Receipt Date: 20181213
  Transmission Date: 20190205
  Serious: Yes (Other)
  Sender: FDA-Public Use
  Company Number: US-JNJFOC-20181214051

PATIENT
  Age: 61 Year
  Sex: Male

DRUGS (2)
  1. INVOKANA [Suspect]
     Active Substance: CANAGLIFLOZIN
     Indication: TYPE 2 DIABETES MELLITUS
     Dosage: 100, 300 AND 150 MG
     Route: 048
     Dates: start: 20160331, end: 20160908
  2. METFORMIN [Suspect]
     Active Substance: METFORMIN HYDROCHLORIDE
     Indication: PRODUCT USED FOR UNKNOWN INDICATION
     Route: 065

REACTIONS (7)
  - Diabetic foot [Unknown]
  - Impaired healing [Unknown]
  - Incorrect dose administered [Unknown]
  - Off label use [Unknown]
  - Gastrointestinal disorder [Unknown]
  - Osteomyelitis [Unknown]
  - Toe amputation [Unknown]

NARRATIVE: CASE EVENT DATE: 201608
